FAERS Safety Report 14528300 (Version 2)
Quarter: 2018Q1

REPORT INFORMATION
  Report Type: Spontaneous
  Country: RU (occurrence: RU)
  Receive Date: 20180214
  Receipt Date: 20180223
  Transmission Date: 20180509
  Serious: Yes (Other)
  Sender: FDA-Public Use
  Company Number: RU-ASTRAZENECA-2017SF28594

PATIENT
  Age: 65 Year
  Sex: Male
  Weight: 67 kg

DRUGS (6)
  1. LOZAP [Concomitant]
  2. EPLERENONE. [Concomitant]
     Active Substance: EPLERENONE
  3. THROMBO ASS [Concomitant]
     Active Substance: ASPIRIN
  4. PRESTARIUM [Concomitant]
     Active Substance: PERINDOPRIL
  5. BRILINTA [Suspect]
     Active Substance: TICAGRELOR
     Indication: MYOCARDIAL INFARCTION
     Route: 048
     Dates: start: 201709
  6. TRIGRIM [Concomitant]

REACTIONS (3)
  - Pleural effusion [Recovered/Resolved]
  - Drug ineffective [Unknown]
  - Dyspnoea [Not Recovered/Not Resolved]

NARRATIVE: CASE EVENT DATE: 201709
